FAERS Safety Report 8780863 (Version 1)
Quarter: 2012Q4

REPORT INFORMATION
  Report Type: 
  Country: US (occurrence: US)
  Receive Date: 20120911
  Receipt Date: 20120911
  Transmission Date: 20130627
  Serious: Yes (Hospitalization, Other)
  Sender: FDA-Public Use
  Company Number: US-ELI_LILLY_AND_COMPANY-US201209001606

PATIENT
  Sex: Female

DRUGS (2)
  1. FORTEO [Suspect]
     Indication: OSTEOPOROSIS
     Dosage: UNK, qd
  2. FORTEO [Suspect]
     Dosage: UNK, qd

REACTIONS (6)
  - Polyp [Unknown]
  - Hernia [Unknown]
  - Dyspepsia [Unknown]
  - Fall [Unknown]
  - Muscle strain [Unknown]
  - Drug ineffective [Unknown]
